FAERS Safety Report 15848337 (Version 2)
Quarter: 2019Q1

REPORT INFORMATION
  Report Type: Spontaneous
  Country: US (occurrence: US)
  Receive Date: 20190121
  Receipt Date: 20190206
  Transmission Date: 20190417
  Serious: No
  Sender: FDA-Public Use
  Company Number: US-PFIZER INC-2019025470

PATIENT
  Age: 53 Year
  Sex: Female

DRUGS (1)
  1. NORVASC [Suspect]
     Active Substance: AMLODIPINE BESYLATE
     Dosage: 0.5 DF, 2X/DAY (TAKE 0.5 TABS BY MOUTH 2 TIMES DAILY)
     Route: 048

REACTIONS (1)
  - Product use issue [Unknown]
